FAERS Safety Report 9349837 (Version 1)
Quarter: 2013Q2

REPORT INFORMATION
  Report Type: Spontaneous
  Country: US (occurrence: None)
  Receive Date: 20130611
  Receipt Date: 20130611
  Transmission Date: 20140414
  Serious: No
  Sender: FDA-Public Use
  Company Number: 2013-00101

PATIENT
  Age: 59 Year
  Sex: Female
  Weight: 70.76 kg

DRUGS (2)
  1. ZICAM COLD REMEDY PLUS ORAL MIST [Suspect]
     Indication: NASOPHARYNGITIS
     Dosage: SPRAYED ORALLY 3 TIMES DAILY
     Route: 048
     Dates: start: 20130528, end: 20130601
  2. XELODA [Concomitant]

REACTIONS (1)
  - Ageusia [None]
